FAERS Safety Report 4580544-2 (Version None)
Quarter: 2005Q1

REPORT INFORMATION
  Report Type: 
  Country: None (occurrence: None)
  Receive Date: 20050127
  Receipt Date: 20040912
  Transmission Date: 20050727
  Serious: No
  Sender: FDA-Public Use
  Company Number: USA040874942

PATIENT
  Age: 35 Year
  Sex: Female
  Weight: 93 kg

DRUGS (11)
  1. STRATTERA [Suspect]
     Indication: DEPRESSION
     Dosage: 40 MG/2 DAY
     Dates: start: 20040601, end: 20040831
  2. EFFEXOR-XR (VENLAFAXINE HYDROHCLORIDE) [Concomitant]
  3. HUMAN INSULIN MIXTURE [Concomitant]
  4. GLUCOPHAGE XR (METFORMIN HYDROCHLORIDE) [Concomitant]
  5. KLONOPIN [Concomitant]
  6. NEXIUM [Concomitant]
  7. RISPERDAL [Concomitant]
  8. LIPITOR [Concomitant]
  9. TRAZODONE [Concomitant]
  10. NEURONTIN [Concomitant]
  11. ORTHO TRI-CYCLEN [Concomitant]

REACTIONS (3)
  - HYPOAESTHESIA [None]
  - OEDEMA PERIPHERAL [None]
  - RASH PAPULAR [None]
